FAERS Safety Report 8345567-6 (Version None)
Quarter: 2012Q2

REPORT INFORMATION
  Report Type: 
  Country: None (occurrence: None)
  Receive Date: 20120508
  Receipt Date: 20110712
  Transmission Date: 20120825
  Serious: No
  Sender: FDA-Public Use
  Company Number: US-BAUSCH-2011BL004547

PATIENT
  Age: 32 Year
  Sex: Female

DRUGS (3)
  1. ALREX [Suspect]
     Indication: OFF LABEL USE
     Route: 047
     Dates: start: 20100801
  2. ARTIFICIAL TEARS [Concomitant]
     Indication: DRY EYE
     Route: 047
     Dates: start: 20080101
  3. ALREX [Suspect]
     Indication: PINGUECULA
     Route: 047
     Dates: start: 20100801

REACTIONS (3)
  - ABNORMAL SENSATION IN EYE [None]
  - EYE IRRITATION [None]
  - EYE PRURITUS [None]
